FAERS Safety Report 7822069-4 (Version None)
Quarter: 2011Q4

REPORT INFORMATION
  Report Type: 
  Country: None (occurrence: None)
  Receive Date: 20111018
  Receipt Date: 20111012
  Transmission Date: 20120403
  Serious: Yes (Hospitalization)
  Sender: FDA-Public Use
  Company Number: PHEH2011US06813

PATIENT
  Sex: Male
  Weight: 88.889 kg

DRUGS (1)
  1. EXJADE [Suspect]

REACTIONS (1)
  - PNEUMONIA [None]
